FAERS Safety Report 6025277-0 (Version None)
Quarter: 2008Q4

REPORT INFORMATION
  Report Type: 
  Country: None (occurrence: None)
  Receive Date: 20081231
  Receipt Date: 20081222
  Transmission Date: 20090506
  Serious: Yes (Other)
  Sender: FDA-Public Use
  Company Number: PHHY2008CA31602

PATIENT
  Sex: Female

DRUGS (7)
  1. DIOVAN [Suspect]
     Indication: HYPERTENSION
     Dosage: 80 MG
  2. CALCIUM CHANNEL BLOCKERS [Concomitant]
     Indication: HYPERTENSION
  3. HCT ^ISIS^ [Concomitant]
     Dosage: 25 MG
  4. RABEPRAZOLE SODIUM [Concomitant]
  5. LEVOTHYROXINE [Concomitant]
  6. SERAX [Concomitant]
  7. ADALAT [Concomitant]

REACTIONS (2)
  - PERIPHERAL COLDNESS [None]
  - RAYNAUD'S PHENOMENON [None]
